FAERS Safety Report 25341520 (Version 1)
Quarter: 2025Q2

REPORT INFORMATION
  Report Type: Spontaneous
  Country: GB (occurrence: GB)
  Receive Date: 20250521
  Receipt Date: 20250521
  Transmission Date: 20250717
  Serious: Yes (Death)
  Sender: TEVA
  Company Number: GB-ETHYPHARM-2025000978

PATIENT
  Age: 34 Year
  Sex: Male

DRUGS (3)
  1. DIAZEPAM [Suspect]
     Active Substance: DIAZEPAM
     Indication: Product used for unknown indication
     Route: 065
  2. MORPHINE [Suspect]
     Active Substance: MORPHINE
     Indication: Product used for unknown indication
     Route: 048
  3. TRENBOLONE [Concomitant]
     Active Substance: TRENBOLONE

REACTIONS (1)
  - Toxicity to various agents [Fatal]
